FAERS Safety Report 6410453-5 (Version None)
Quarter: 2009Q4

REPORT INFORMATION
  Report Type: 
  Country: None (occurrence: None)
  Receive Date: 20091022
  Receipt Date: 20091012
  Transmission Date: 20100525
  Serious: Yes (Other)
  Sender: FDA-Public Use
  Company Number: TN-WATSON-2009-08536

PATIENT
  Age: 24 Year
  Sex: Female

DRUGS (1)
  1. FUROSEMIDE (WATSON LABORATORIES) [Suspect]
     Indication: SYSTEMIC LUPUS ERYTHEMATOSUS
     Dosage: 20 MG, DAILY

REACTIONS (1)
  - TOXIC EPIDERMAL NECROLYSIS [None]
